FAERS Safety Report 9340478 (Version 2)
Quarter: 2013Q2

REPORT INFORMATION
  Report Type: Spontaneous
  Country: US (occurrence: US)
  Receive Date: 20130610
  Receipt Date: 20130621
  Transmission Date: 20140414
  Serious: No
  Sender: FDA-Public Use
  Company Number: US-BAYER-2013-070550

PATIENT
  Age: 56 Year
  Sex: Female
  Weight: 82 kg

DRUGS (8)
  1. ESTRADIOL HEMIHYDRATE (PATCH) [Suspect]
     Indication: ARTIFICIAL MENOPAUSE
     Dosage: DAILY DOSE .1 MG
     Route: 062
     Dates: start: 200007
  2. CLONIDINE [Concomitant]
     Indication: HYPERTENSION
     Dosage: 0.1 MG, BID
     Dates: start: 201301
  3. NORVASC [Concomitant]
     Indication: HYPERTENSION
     Dosage: 0.5 TWICE/DAY
     Dates: start: 201303
  4. BYSTOLIC [Concomitant]
     Indication: HYPERTENSION
     Dosage: 0.5 MG, BID
     Dates: start: 200906
  5. OXYCODONE/APAP [Concomitant]
     Indication: MUSCULOSKELETAL PAIN
     Dosage: 10/325 MG ONCE/DAY
     Dates: start: 201212
  6. RELPAX [Concomitant]
     Indication: MIGRAINE
     Dosage: 5 MG, PRN
     Dates: start: 200502
  7. XANAX [Concomitant]
     Indication: ANXIETY
     Dosage: 1/2 TO 1 TWICE PER DAY
     Dates: start: 201211
  8. STANBACK HEADACHE [Concomitant]
     Indication: HEADACHE
     Dosage: UNK UNK, PRN
     Dates: start: 200407

REACTIONS (4)
  - Headache [Not Recovered/Not Resolved]
  - Product adhesion issue [None]
  - Drug ineffective [Not Recovered/Not Resolved]
  - Irritability [Not Recovered/Not Resolved]
